FAERS Safety Report 19443695 (Version 2)
Quarter: 2021Q2

REPORT INFORMATION
  Report Type: Spontaneous
  Country: IT (occurrence: IT)
  Receive Date: 20210621
  Receipt Date: 20210624
  Transmission Date: 20210717
  Serious: Yes (Life-Threatening, Other)
  Sender: FDA-Public Use
  Company Number: IT-PFIZER INC-2021729850

PATIENT
  Age: 59 Year
  Sex: Female

DRUGS (3)
  1. VOLTAREN FORTE [DICLOFENAC SODIUM] [Suspect]
     Active Substance: DICLOFENAC SODIUM
     Dosage: UNK
  2. LYRICA [Suspect]
     Active Substance: PREGABALIN
     Indication: BACK PAIN
     Dosage: 25 MG, DAILY
     Route: 048
  3. NICETILE [Suspect]
     Active Substance: LEVACECARNINE HYDROCHLORIDE
     Dosage: UNK

REACTIONS (4)
  - Visual impairment [Not Recovered/Not Resolved]
  - Syncope [Not Recovered/Not Resolved]
  - Vomiting [Not Recovered/Not Resolved]
  - Pain [Not Recovered/Not Resolved]

NARRATIVE: CASE EVENT DATE: 20210604
